FAERS Safety Report 10236043 (Version 1)
Quarter: 2014Q2

REPORT INFORMATION
  Report Type: Spontaneous
  Country: FR (occurrence: DE)
  Receive Date: 20140613
  Receipt Date: 20140613
  Transmission Date: 20141212
  Serious: Yes (Other)
  Sender: FDA-Public Use
  Company Number: DE-FRI-1000067952

PATIENT
  Age: 56 Year
  Sex: Male

DRUGS (4)
  1. CAMPRAL [Suspect]
     Dosage: 3 DF
     Dates: start: 20140110, end: 20140113
  2. CAMPRAL [Suspect]
     Dosage: 6 DF
     Dates: start: 20140114, end: 20140117
  3. ATOSIL [Concomitant]
     Dosage: 25 MG
     Route: 048
     Dates: start: 20140103
  4. PANTOPRAZOLE [Concomitant]
     Dosage: 40 MG
     Route: 048
     Dates: start: 20131225

REACTIONS (2)
  - Dermatitis allergic [Unknown]
  - Rash [Unknown]
